FAERS Safety Report 7057276-4 (Version None)
Quarter: 2010Q4

REPORT INFORMATION
  Report Type: 
  Country: None (occurrence: None)
  Receive Date: 20101022
  Receipt Date: 20101012
  Transmission Date: 20110411
  Serious: Yes (Hospitalization)
  Sender: FDA-Public Use
  Company Number: US-MYLANLABS-2010S1018690

PATIENT
  Age: 60 Year
  Sex: Male
  Weight: 180.08 kg

DRUGS (8)
  1. HYDROCHLOROTHIAZIDE [Suspect]
     Indication: HYPERTENSION
     Route: 048
     Dates: start: 20090604, end: 20090616
  2. HYDROCHLOROTHIAZIDE [Suspect]
     Route: 048
     Dates: start: 20090617
  3. DIOVAN [Concomitant]
     Indication: HYPERTENSION
     Route: 048
     Dates: start: 20090521
  4. GLIMEPIRIDE [Concomitant]
     Indication: DIABETES MELLITUS
     Route: 048
     Dates: start: 20020101
  5. LEVOXYL [Concomitant]
     Indication: HYPOTHYROIDISM
     Route: 048
     Dates: start: 20081201
  6. LIPITOR [Concomitant]
     Indication: HYPERLIPIDAEMIA
     Route: 048
     Dates: start: 20020101
  7. METFORMIN [Concomitant]
     Indication: HYPERLIPIDAEMIA
     Route: 048
     Dates: start: 20020101
  8. ASPIRIN [Concomitant]
     Indication: CARDIOVASCULAR EVENT PROPHYLAXIS
     Route: 048
     Dates: start: 20020101

REACTIONS (1)
  - ABDOMINAL PAIN [None]
